FAERS Safety Report 7777183-9 (Version None)
Quarter: 2011Q3

REPORT INFORMATION
  Report Type: 
  Country: None (occurrence: None)
  Receive Date: 20110926
  Receipt Date: 20110915
  Transmission Date: 20111222
  Serious: Yes (Hospitalization)
  Sender: FDA-Public Use
  Company Number: CA-JNJFOC-20110907513

PATIENT
  Weight: 65 kg

DRUGS (2)
  1. REMICADE [Suspect]
     Indication: CROHN'S DISEASE
     Route: 042
  2. PREDNISONE [Concomitant]
     Route: 065

REACTIONS (2)
  - ARRHYTHMIA [None]
  - CROHN'S DISEASE [None]
